FAERS Safety Report 6506064-3 (Version None)
Quarter: 2009Q4

REPORT INFORMATION
  Report Type: 
  Country: None (occurrence: None)
  Receive Date: 20091218
  Receipt Date: 20091209
  Transmission Date: 20100525
  Serious: Yes (Hospitalization, Other)
  Sender: FDA-Public Use
  Company Number: US-JNJFOC-20091203745

PATIENT
  Sex: Female
  Weight: 47.63 kg

DRUGS (7)
  1. DURAGESIC-100 [Suspect]
     Indication: ARTHRALGIA
  2. DURAGESIC-100 [Suspect]
  3. DURAGESIC-100 [Suspect]
  4. DURAGESIC-100 [Suspect]
     Route: 062
  5. NUBAIN [Suspect]
     Indication: DRUG USE FOR UNKNOWN INDICATION
     Route: 065
  6. METHOTREXATE [Concomitant]
     Indication: RHEUMATOID ARTHRITIS
     Route: 048
  7. REMICADE [Concomitant]
     Indication: RHEUMATOID ARTHRITIS
     Route: 042

REACTIONS (5)
  - APPENDICITIS PERFORATED [None]
  - COLON CANCER [None]
  - PRODUCT QUALITY ISSUE [None]
  - RHEUMATOID ARTHRITIS [None]
  - WITHDRAWAL SYNDROME [None]
